FAERS Safety Report 7843839-2 (Version None)
Quarter: 2011Q4

REPORT INFORMATION
  Report Type: 
  Country: None (occurrence: None)
  Receive Date: 20111025
  Receipt Date: 20111013
  Transmission Date: 20120403
  Serious: Yes (Other)
  Sender: FDA-Public Use
  Company Number: US-ROCHE-1004414

PATIENT

DRUGS (1)
  1. XOLAIR [Suspect]
     Indication: ASTHMA
     Dates: start: 20090603

REACTIONS (4)
  - HYPERSENSITIVITY [None]
  - COUGH [None]
  - WHEEZING [None]
  - DYSPNOEA [None]
